FAERS Safety Report 23256324 (Version 2)
Quarter: 2023Q4

REPORT INFORMATION
  Report Type: Report from Study
  Country: GB (occurrence: GB)
  Receive Date: 20231204
  Receipt Date: 20231218
  Transmission Date: 20240109
  Serious: Yes (Death, Hospitalization, Other)
  Sender: FDA-Public Use
  Company Number: GB-IPSEN Group, Research and Development-2023-20296

PATIENT
  Age: 17 Year
  Sex: Female
  Weight: 34 kg

DRUGS (2)
  1. TAZEMETOSTAT HYDROBROMIDE [Suspect]
     Active Substance: TAZEMETOSTAT HYDROBROMIDE
     Indication: Neoplasm malignant
     Route: 048
     Dates: start: 202305
  2. TAZEMETOSTAT HYDROBROMIDE [Suspect]
     Active Substance: TAZEMETOSTAT HYDROBROMIDE
     Indication: Off label use
     Route: 048
     Dates: end: 20230927

REACTIONS (8)
  - Malignant neoplasm progression [Fatal]
  - Acute abdomen [Unknown]
  - Blindness [Unknown]
  - Hemiparesis [Unknown]
  - Sensory loss [Unknown]
  - Toxicity to various agents [Unknown]
  - Off label use [Unknown]
  - Diarrhoea [Recovering/Resolving]

NARRATIVE: CASE EVENT DATE: 20230818
